FAERS Safety Report 5977869-2 (Version None)
Quarter: 2008Q4

REPORT INFORMATION
  Report Type: 
  Country: None (occurrence: None)
  Receive Date: 20081203
  Receipt Date: 20081128
  Transmission Date: 20090506
  Serious: Yes (Death)
  Sender: FDA-Public Use
  Company Number: CA-JNJFOC-20081105549

PATIENT
  Sex: Male
  Weight: 78.02 kg

DRUGS (9)
  1. REMINYL ER [Suspect]
     Route: 048
  2. REMINYL ER [Suspect]
     Indication: DEMENTIA ALZHEIMER'S TYPE
     Route: 048
  3. BRICANYL [Suspect]
     Indication: CHRONIC OBSTRUCTIVE PULMONARY DISEASE
     Dosage: PRN
  4. ZESTRIL [Concomitant]
     Indication: HYPERTENSION
  5. LASIX [Concomitant]
     Indication: RENAL FAILURE CHRONIC
  6. CRESTOR [Concomitant]
     Indication: DYSLIPIDAEMIA
  7. ASPIRIN [Concomitant]
     Indication: DRUG USE FOR UNKNOWN INDICATION
  8. MONOCOR [Concomitant]
     Indication: ARTERIOSCLEROSIS CORONARY ARTERY
  9. TEGRETOL [Concomitant]
     Indication: EPILEPSY

REACTIONS (1)
  - ARRHYTHMIA [None]
